FAERS Safety Report 9860114 (Version 1)
Quarter: 2014Q1

REPORT INFORMATION
  Report Type: Spontaneous
  Country: US (occurrence: US)
  Receive Date: 20140201
  Receipt Date: 20140201
  Transmission Date: 20141002
  Serious: Yes (Life-Threatening, Disabling)
  Sender: FDA-Public Use
  Company Number: US-ROXANE LABORATORIES, INC.-2014-RO-00110RO

PATIENT
  Age: 23 Year
  Sex: Male

DRUGS (3)
  1. METHADONE [Suspect]
     Dosage: 30 MG
  2. METHADONE [Suspect]
     Dosage: 90 MG
  3. NALTREXONE [Suspect]
     Indication: SUBSTANCE ABUSE
     Dosage: 50 MG

REACTIONS (3)
  - Overdose [Unknown]
  - Respiratory arrest [Recovered/Resolved]
  - Deafness neurosensory [Not Recovered/Not Resolved]
